FAERS Safety Report 17458217 (Version 1)
Quarter: 2020Q1

REPORT INFORMATION
  Report Type: Spontaneous
  Country: US (occurrence: US)
  Receive Date: 20200225
  Receipt Date: 20200225
  Transmission Date: 20200409
  Serious: No
  Sender: FDA-Public Use
  Company Number: US-JNJFOC-20200223487

PATIENT
  Age: 23 Year
  Sex: Female
  Weight: 66.74 kg

DRUGS (1)
  1. SPRAVATO [Suspect]
     Active Substance: ESKETAMINE
     Indication: DEPRESSION
     Dates: start: 20191121

REACTIONS (2)
  - Underdose [Unknown]
  - Distractibility [Unknown]

NARRATIVE: CASE EVENT DATE: 20200213
